FAERS Safety Report 21100297 (Version 1)
Quarter: 2022Q3

REPORT INFORMATION
  Report Type: Spontaneous
  Country: US (occurrence: US)
  Receive Date: 20220719
  Receipt Date: 20220719
  Transmission Date: 20221027
  Serious: Yes (Hospitalization, Other)
  Sender: FDA-Public Use
  Company Number: US-INSUD PHARMA-2207US02783

PATIENT

DRUGS (2)
  1. ESTRASORB [Suspect]
     Active Substance: ESTRADIOL HEMIHYDRATE
     Indication: Hormone replacement therapy
     Dosage: 0.1 MG/24 H WEEKLY
     Route: 062
     Dates: start: 202104
  2. ACETAMINOPHEN [Concomitant]
     Active Substance: ACETAMINOPHEN
     Indication: Headache

REACTIONS (10)
  - Idiopathic intracranial hypertension [Unknown]
  - Headache [Unknown]
  - Condition aggravated [Unknown]
  - Nausea [Unknown]
  - Vomiting [Unknown]
  - Photophobia [Unknown]
  - Phonophobia [Unknown]
  - Tinnitus [Unknown]
  - Vision blurred [Unknown]
  - Papilloedema [Unknown]

NARRATIVE: CASE EVENT DATE: 20210101
